FAERS Safety Report 20610778 (Version 4)
Quarter: 2023Q1

REPORT INFORMATION
  Report Type: Spontaneous
  Country: JP (occurrence: JP)
  Receive Date: 20220318
  Receipt Date: 20230215
  Transmission Date: 20230418
  Serious: Yes (Other)
  Sender: FDA-Public Use
  Company Number: JP-ASTELLAS-2022JP004436

PATIENT
  Age: 9 Decade
  Sex: Male

DRUGS (1)
  1. PADCEV [Suspect]
     Active Substance: ENFORTUMAB VEDOTIN-EJFV
     Indication: Transitional cell carcinoma
     Dosage: 1.25 MG/KG, IV DRIP OVER 30 MIN OR LONGER, ONCE WEEKLY IN 3 CONSECUTIVE WKS, INTERRUPTED IN 4TH WK
     Route: 041
     Dates: start: 202203

REACTIONS (1)
  - Urinary bladder haemorrhage [Recovered/Resolved]
